FAERS Safety Report 6224636-0 (Version None)
Quarter: 2009Q2

REPORT INFORMATION
  Report Type: 
  Country: None (occurrence: None)
  Receive Date: 20090612
  Receipt Date: 20090324
  Transmission Date: 20091009
  Serious: No
  Sender: FDA-Public Use
  Company Number: US-ABBOTT-09P-163-0564605-00

PATIENT
  Sex: Female
  Weight: 65.83 kg

DRUGS (8)
  1. HUMIRA [Suspect]
     Indication: CROHN'S DISEASE
     Route: 058
     Dates: start: 20071201
  2. EVISTA [Suspect]
     Indication: HORMONE REPLACEMENT THERAPY
     Dates: end: 20090101
  3. AZULFIDINE EN-TABS [Concomitant]
     Indication: ROSACEA
  4. CALCIUM [Concomitant]
     Indication: DRUG USE FOR UNKNOWN INDICATION
  5. NEXIUM [Concomitant]
     Indication: DRUG USE FOR UNKNOWN INDICATION
  6. STOOL SOFTENER [Concomitant]
     Indication: DRUG USE FOR UNKNOWN INDICATION
  7. VITAMIN B-12 [Concomitant]
     Indication: DRUG USE FOR UNKNOWN INDICATION
     Route: 050
  8. TYLENOL (CAPLET) [Concomitant]
     Indication: DRUG USE FOR UNKNOWN INDICATION

REACTIONS (1)
  - ALOPECIA [None]
